FAERS Safety Report 8590176-7 (Version None)
Quarter: 2012Q3

REPORT INFORMATION
  Report Type: 
  Country: None (occurrence: None)
  Receive Date: 20120813
  Receipt Date: 20120730
  Transmission Date: 20120928
  Serious: Yes (Death, Other)
  Sender: FDA-Public Use
  Company Number: CA-ROCHE-664323

PATIENT

DRUGS (3)
  1. IRINOTECAN HYDROCHLORIDE AND IRINOTECAN HYDROCHLORIDE [Suspect]
     Indication: COLORECTAL CANCER METASTATIC
     Dosage: GIVEN ON DAY 1
     Route: 042
  2. AVASTIN [Suspect]
     Indication: COLORECTAL CANCER METASTATIC
     Dosage: GIVEN ON DAY 1
     Route: 042
  3. XELODA [Suspect]
     Indication: COLORECTAL CANCER METASTATIC
     Dosage: 1000 MG/M2 TWICE DAILY FOR AGE BELOW 65 YEARS,750 MG/M2 TWICE DAILY FOR AGE ABOVE 65 YEARS
     Route: 048

REACTIONS (20)
  - NEUTROPENIA [None]
  - DEHYDRATION [None]
  - HYPOKALAEMIA [None]
  - DECREASED APPETITE [None]
  - VASCULAR ACCESS COMPLICATION [None]
  - BLOOD BILIRUBIN INCREASED [None]
  - HYPOPHOSPHATAEMIA [None]
  - SMALL INTESTINAL OBSTRUCTION [None]
  - DIARRHOEA [None]
  - ABDOMINAL PAIN [None]
  - ALOPECIA [None]
  - HYPONATRAEMIA [None]
  - THROMBOSIS [None]
  - HYPERTENSION [None]
  - NAUSEA [None]
  - PROTEINURIA [None]
  - PALMAR-PLANTAR ERYTHRODYSAESTHESIA SYNDROME [None]
  - ABDOMINAL DISTENSION [None]
  - ANAL EXAMINATION ABNORMAL [None]
  - FATIGUE [None]
